FAERS Safety Report 13899768 (Version 1)
Quarter: 2017Q3

REPORT INFORMATION
  Report Type: Spontaneous
  Country: US (occurrence: None)
  Receive Date: 20170824
  Receipt Date: 20170824
  Transmission Date: 20171127
  Serious: No
  Sender: FDA-Public Use
  Company Number: None

PATIENT
  Age: 78 Year
  Sex: Female
  Weight: 54.43 kg

DRUGS (14)
  1. ZINC. [Concomitant]
     Active Substance: ZINC
  2. LECITHIN [Concomitant]
     Active Substance: LECITHIN
  3. BENTYL [Concomitant]
     Active Substance: DICYCLOMINE HYDROCHLORIDE
  4. M.S. CONTIN [Concomitant]
  5. VALIUM [Concomitant]
     Active Substance: DIAZEPAM
  6. OSTEO BI FLEX [Concomitant]
  7. RESVERATROL + PROBIOTIC (CULTURELL) [Concomitant]
  8. XIIDRA [Suspect]
     Active Substance: LIFITEGRAST
     Indication: DRY EYE
     Dates: start: 20170808, end: 20170809
  9. SYNTHROID [Concomitant]
     Active Substance: LEVOTHYROXINE SODIUM
  10. LUTEIN [Concomitant]
     Active Substance: LUTEIN
  11. TART CHERRY [Concomitant]
  12. MAGNESIUM + POTASSIUM [Concomitant]
  13. TUMERIC CURCUMIN [Concomitant]
  14. OMEGA 3-6-9 [Concomitant]
     Active Substance: FISH OIL

REACTIONS (1)
  - Eye pain [None]

NARRATIVE: CASE EVENT DATE: 20170808
